FAERS Safety Report 4806994-4 (Version None)
Quarter: 2005Q4

REPORT INFORMATION
  Report Type: 
  Country: None (occurrence: None)
  Receive Date: 20051024
  Receipt Date: 20051012
  Transmission Date: 20060501
  Serious: Yes (Hospitalization, Disabling, Other)
  Sender: FDA-Public Use
  Company Number: US-JNJFOC-20050702180

PATIENT
  Sex: Female
  Weight: 47.8 kg

DRUGS (44)
  1. REMICADE [Suspect]
  2. REMICADE [Suspect]
  3. REMICADE [Suspect]
  4. REMICADE [Suspect]
  5. REMICADE [Suspect]
     Dosage: RE-STARTED AT 0,2 AND 6 WEEKS AFTER MISSING MAR-2003 DOSE
  6. REMICADE [Suspect]
  7. REMICADE [Suspect]
  8. REMICADE [Suspect]
     Dosage: #2
  9. REMICADE [Suspect]
     Indication: CROHN'S DISEASE
     Dosage: FIRST DOSE
  10. ZOLOFT [Suspect]
     Route: 048
  11. ZOLOFT [Suspect]
     Route: 048
  12. ZOLOFT [Suspect]
     Route: 048
  13. ZOLOFT [Suspect]
     Route: 048
  14. ZOLOFT [Suspect]
     Route: 048
  15. FLAGYL [Suspect]
     Route: 048
  16. FLAGYL [Suspect]
     Indication: AMOEBIC COLITIS
     Route: 048
  17. FLAGYL [Suspect]
     Route: 048
  18. THALIDOMIDE [Suspect]
     Dosage: AT HS
  19. SULFASALAZINE [Suspect]
     Route: 048
  20. IMURAN [Concomitant]
  21. IMURAN [Concomitant]
     Dosage: ? START DATE (BETWEEN OCT 2002 AND JAN-2003)
  22. IMURAN [Concomitant]
  23. IMURAN [Concomitant]
  24. IMURAN [Concomitant]
  25. FOLIC ACID [Concomitant]
  26. LEXAPRO [Concomitant]
     Route: 048
  27. PREDNISONE TAB [Concomitant]
     Route: 048
  28. PREDNISONE TAB [Concomitant]
     Route: 048
  29. PREDNISONE TAB [Concomitant]
     Route: 048
  30. PREDNISONE TAB [Concomitant]
     Route: 048
  31. PREDNISONE TAB [Concomitant]
     Route: 048
  32. PREDNISONE TAB [Concomitant]
     Indication: CROHN'S DISEASE
     Route: 048
  33. ASACOL [Concomitant]
     Route: 048
  34. ASACOL [Concomitant]
     Route: 048
  35. ASACOL [Concomitant]
     Indication: CROHN'S DISEASE
     Route: 048
  36. DEPO-PROVERA [Concomitant]
     Route: 030
  37. DEPO-PROVERA [Concomitant]
     Route: 030
  38. EFFEXOR [Concomitant]
     Route: 048
  39. EFFEXOR [Concomitant]
     Route: 048
  40. PAXIL [Concomitant]
     Indication: DEPRESSION
     Route: 048
  41. WELLBUTRIN SR [Concomitant]
     Route: 048
  42. WELLBUTRIN SR [Concomitant]
     Indication: DEPRESSION
     Route: 048
  43. IRON [Concomitant]
     Route: 048
  44. PRILOSEC [Concomitant]
     Dosage: PATIENT STOPPED ON HER OWN
     Route: 048

REACTIONS (20)
  - ACNE [None]
  - ANAL FISTULA [None]
  - CEREBRAL ATROPHY [None]
  - CROHN'S DISEASE [None]
  - DRUG ERUPTION [None]
  - ECZEMA INFECTED [None]
  - HEADACHE [None]
  - HYPERMETROPIA [None]
  - INFECTION [None]
  - LEUKOENCEPHALOPATHY [None]
  - LICE INFESTATION [None]
  - MAJOR DEPRESSION [None]
  - MOLLUSCUM CONTAGIOSUM [None]
  - NEUROPATHY PERIPHERAL [None]
  - OBSESSIVE-COMPULSIVE DISORDER [None]
  - PARAESTHESIA [None]
  - PHARYNGITIS STREPTOCOCCAL [None]
  - ROAD TRAFFIC ACCIDENT [None]
  - SUICIDAL IDEATION [None]
  - VAGINAL CANDIDIASIS [None]
